FAERS Safety Report 19712869 (Version 2)
Quarter: 2021Q3

REPORT INFORMATION
  Report Type: Spontaneous
  Country: US (occurrence: US)
  Receive Date: 20210817
  Receipt Date: 20210901
  Transmission Date: 20211014
  Serious: Yes (Other)
  Sender: FDA-Public Use
  Company Number: US-COOPERSURGICAL, INC.-US-2021CPS002309

PATIENT
  Age: 27 Year
  Sex: Female
  Weight: 112.2 kg

DRUGS (1)
  1. PARAGARD T 380A [Suspect]
     Active Substance: COPPER
     Indication: CONTRACEPTION
     Dosage: UNK
     Route: 015
     Dates: start: 20210701, end: 20210812

REACTIONS (2)
  - Device dislocation [Recovered/Resolved]
  - Ovarian cyst [Unknown]

NARRATIVE: CASE EVENT DATE: 20210729
